FAERS Safety Report 8059302-2 (Version None)
Quarter: 2012Q1

REPORT INFORMATION
  Report Type: 
  Country: None (occurrence: None)
  Receive Date: 20120120
  Receipt Date: 20120112
  Transmission Date: 20120608
  Serious: Yes (Death)
  Sender: FDA-Public Use
  Company Number: US-CELGENEUS-163-21880-11121747

PATIENT
  Sex: Male

DRUGS (8)
  1. LASIX [Concomitant]
     Dosage: 40 MILLIGRAM
     Route: 048
  2. REVLIMID [Suspect]
     Dosage: 10 MILLIGRAM
     Route: 048
     Dates: start: 20100901, end: 20101101
  3. HEPARIN SODIUM [Concomitant]
     Dosage: 1000 MILLILITER
     Route: 050
  4. HYDREA [Concomitant]
     Dosage: 500 MILLIGRAM
     Route: 048
  5. MULTI-VITAMINS [Concomitant]
     Route: 048
  6. NEXIUM [Concomitant]
     Dosage: 20 MILLIGRAM
     Route: 048
  7. CITALOPRAM HYDROBROMIDE [Concomitant]
     Dosage: 10 MILLIGRAM
     Route: 048
  8. VITAMIN B-12 [Concomitant]
     Dosage: 500 MICROGRAM
     Route: 065

REACTIONS (1)
  - DEATH [None]
